FAERS Safety Report 5794511-4 (Version None)
Quarter: 2008Q2

REPORT INFORMATION
  Report Type: 
  Country: None (occurrence: None)
  Receive Date: 20080626
  Receipt Date: 20080617
  Transmission Date: 20081010
  Serious: Yes (Other)
  Sender: FDA-Public Use
  Company Number: 2008AP000256

PATIENT
  Age: 45 Year
  Sex: Male

DRUGS (9)
  1. PAROXETINE HCL [Suspect]
     Dosage: 20 MG; PO; QD; 30 MG; QD; PO; PO; PO;
     Route: 048
     Dates: end: 20031215
  2. PAROXETINE HCL [Suspect]
     Dosage: 20 MG; PO; QD; 30 MG; QD; PO; PO; PO;
     Route: 048
     Dates: start: 19980514
  3. PAROXETINE HCL [Suspect]
     Dosage: 20 MG; PO; QD; 30 MG; QD; PO; PO; PO;
     Route: 048
     Dates: start: 19981001
  4. PAROXETINE HCL [Suspect]
     Dosage: 20 MG; PO; QD; 30 MG; QD; PO; PO; PO;
     Route: 048
     Dates: start: 20050701
  5. THIORIDAZINE HCL [Concomitant]
  6. DIAZEPAM [Concomitant]
  7. PROMAZINE HCL [Concomitant]
  8. PROPRANOLOL [Concomitant]
  9. ZOPICLONE (ZOPICLONE) [Concomitant]

REACTIONS (25)
  - AGGRESSION [None]
  - CHEST PAIN [None]
  - CONFUSIONAL STATE [None]
  - DEPRESSION [None]
  - DIARRHOEA [None]
  - DISORIENTATION [None]
  - DIZZINESS [None]
  - DRUG DEPENDENCE [None]
  - EPISTAXIS [None]
  - FATIGUE [None]
  - INFLUENZA LIKE ILLNESS [None]
  - INSOMNIA [None]
  - INTENTIONAL SELF-INJURY [None]
  - IRRITABILITY [None]
  - MALAISE [None]
  - MOOD ALTERED [None]
  - MOOD SWINGS [None]
  - NIGHTMARE [None]
  - PARAESTHESIA [None]
  - SELF-INJURIOUS IDEATION [None]
  - SUICIDAL BEHAVIOUR [None]
  - SUICIDE ATTEMPT [None]
  - VERTIGO [None]
  - VIOLENCE-RELATED SYMPTOM [None]
  - WITHDRAWAL SYNDROME [None]
